FAERS Safety Report 9444523 (Version 4)
Quarter: 2013Q4

REPORT INFORMATION
  Report Type: Spontaneous
  Country: US (occurrence: None)
  Receive Date: 20130805
  Receipt Date: 20131105
  Transmission Date: 20140711
  Serious: Yes (Other)
  Sender: FDA-Public Use
  Company Number: ACO_37646_2013

PATIENT
  Sex: Female
  Weight: 72.1 kg

DRUGS (17)
  1. ASA ACETYLSALICYLIC ACID [Concomitant]
  2. POTASSIUM (POTASSIUM) [Concomitant]
  3. VITAMIN B COMPLEX (VITAMIN B COMPLEX) [Concomitant]
  4. NORVASC (AMLODIPINE BESILATE) [Concomitant]
  5. COZAAR (LOSARTAN POTASSIUM) (50 MILLIGRAM, TABLETS) (LOSARTAN POTASSIUM) [Concomitant]
  6. HYDROCHOROTHIAZIDE (HYDROCHLOROTHIAZIDE) [Concomitant]
  7. MORPHINE SULFATE (MORPHINE SULFATE) INJECTION [Concomitant]
  8. MIRALAX [Concomitant]
  9. COLACE (DOCUSARE SODIUM) [Concomitant]
  10. DEXILANT (DEXLANSOPRAZOLE) [Concomitant]
  11. VITAMIN D (ERGOCLACIFEROL) [Concomitant]
  12. ADDRELL (AMFETAMINE ASPARTATE, AMFETAMINE SULFATE, DEXAMFETAMINE SACCHARATE, DEXAFETAMINE SULFATE) [Concomitant]
  13. TECIFIDERA [Suspect]
     Route: 048
  14. GILENYA (FINGOLIMOD HYDROCHLORIDE) [Suspect]
     Dates: start: 2010, end: 2010
  15. AMPRYA [Suspect]
     Indication: MULTIPLE SCLEROSIS
     Route: 048
     Dates: start: 2012
  16. BACLOFEN (BACLOFEN) [Concomitant]
  17. FLOMAX (TAMSULOSIN HYDROCHLORIDE) [Concomitant]

REACTIONS (2)
  - T-lymphocyte count decreased [None]
  - Feeling hot [None]
